FAERS Safety Report 5010058-7 (Version None)
Quarter: 2006Q2

REPORT INFORMATION
  Report Type: 
  Country: None (occurrence: None)
  Receive Date: 20060404
  Receipt Date: 20051115
  Transmission Date: 20061013
  Serious: No
  Sender: FDA-Public Use
  Company Number: US200511001028

PATIENT
  Age: 62 Year
  Sex: Male

DRUGS (1)
  1. CYMBALTA [Suspect]
     Indication: DEPRESSION
     Dosage: 30 MG
     Dates: end: 20050901

REACTIONS (3)
  - DRUG INEFFECTIVE [None]
  - SEXUAL DYSFUNCTION [None]
  - URINARY RETENTION [None]
